FAERS Safety Report 8098320 (Version 2)
Quarter: 2013Q1

REPORT INFORMATION
  Report Type: Spontaneous
  Country: US (occurrence: US)
  Receive Date: 20110819
  Receipt Date: 20130227
  Transmission Date: 20140127
  Serious: Yes (Death, Hospitalization)
  Sender: FDA-Public Use
  Company Number: US-GLAXOSMITHKLINE-A0925443A

PATIENT
  Age: 74 Year
  Sex: Male

DRUGS (12)
  1. AVANDIA [Suspect]
     Indication: DIABETES MELLITUS
     Dosage: 2MG PER DAY
     Route: 048
     Dates: start: 200502, end: 201008
  2. PLAVIX [Concomitant]
  3. ISOSORBIDE MONONITRATE [Concomitant]
  4. METOPROLOL TARTRATE [Concomitant]
  5. PRAVASTATIN [Concomitant]
  6. ALLOPURINOL [Concomitant]
  7. DIOVAN [Concomitant]
  8. ZETIA [Concomitant]
  9. XALATAN [Concomitant]
  10. COMBIGAN [Concomitant]
  11. OLUX [Concomitant]
  12. BAYER ASPIRIN [Concomitant]

REACTIONS (1)
  - Myocardial infarction [Fatal]
